FAERS Safety Report 23404561 (Version 1)
Quarter: 2024Q1

REPORT INFORMATION
  Report Type: Spontaneous
  Country: MX (occurrence: MX)
  Receive Date: 20240116
  Receipt Date: 20240116
  Transmission Date: 20240409
  Serious: Yes (Other)
  Sender: FDA-Public Use
  Company Number: MX-SANOFI-01903057

PATIENT
  Age: 79 Year
  Sex: Female

DRUGS (2)
  1. TOUJEO [Suspect]
     Active Substance: INSULIN GLARGINE
     Indication: Type 2 diabetes mellitus
     Dosage: 30 IU, QD
     Route: 065
     Dates: start: 201706
  2. DEFLAZACORT [Concomitant]
     Active Substance: DEFLAZACORT
     Dosage: 2 DF, BID
     Route: 048

REACTIONS (2)
  - Rheumatoid arthritis [Unknown]
  - Injection site pain [Unknown]

NARRATIVE: CASE EVENT DATE: 20220101
